FAERS Safety Report 10396053 (Version 3)
Quarter: 2015Q2

REPORT INFORMATION
  Report Type: Report from Study
  Country: US (occurrence: US)
  Receive Date: 20140820
  Receipt Date: 20150430
  Transmission Date: 20150821
  Serious: Yes (Hospitalization)
  Sender: FDA-Public Use
  Company Number: US-ACTELION-A-NJ2013-82637

PATIENT
  Age: 31 Year
  Sex: Female

DRUGS (1)
  1. VELETRI [Suspect]
     Active Substance: EPOPROSTENOL
     Indication: PULMONARY ARTERIAL HYPERTENSION
     Dosage: 97 NG/KG, PER MIN
     Route: 041
     Dates: start: 20110623

REACTIONS (11)
  - Pyrexia [Recovered/Resolved]
  - Blood culture positive [Recovered/Resolved]
  - Catheter site erythema [Unknown]
  - Sepsis [Recovered/Resolved]
  - Staphylococcal infection [Recovered/Resolved]
  - Catheter site pain [Unknown]
  - Catheter site infection [Unknown]
  - Catheter site swelling [Unknown]
  - Device related infection [Recovered/Resolved]
  - Catheter site cellulitis [Recovered/Resolved]
  - Catheter placement [Recovered/Resolved]

NARRATIVE: CASE EVENT DATE: 20140719
